FAERS Safety Report 6614384-7 (Version None)
Quarter: 2010Q1

REPORT INFORMATION
  Report Type: 
  Country: None (occurrence: None)
  Receive Date: 20100304
  Receipt Date: 20100301
  Transmission Date: 20100710
  Serious: Yes (Death)
  Sender: FDA-Public Use
  Company Number: US-CELGENEUS-163-20785-10030081

PATIENT
  Sex: Male

DRUGS (5)
  1. THALOMID [Suspect]
     Indication: LEPROMATOUS LEPROSY
     Route: 048
     Dates: start: 20090401
  2. THALOMID [Suspect]
     Route: 048
     Dates: start: 20090301, end: 20090101
  3. THALOMID [Suspect]
     Dosage: 100-200MG
     Route: 048
     Dates: start: 20080228, end: 20090101
  4. COUMADIN [Concomitant]
     Route: 065
  5. COUMADIN [Concomitant]
     Indication: PULMONARY EMBOLISM

REACTIONS (1)
  - CORONARY ARTERY DISEASE [None]
